FAERS Safety Report 18985816 (Version 1)
Quarter: 2021Q1

REPORT INFORMATION
  Report Type: Spontaneous
  Country: JP (occurrence: JP)
  Receive Date: 20210309
  Receipt Date: 20210309
  Transmission Date: 20210420
  Serious: Yes (Hospitalization, Other)
  Sender: FDA-Public Use
  Company Number: JP-ALS-000232

PATIENT
  Age: 28 Year
  Sex: Female
  Weight: 127 kg

DRUGS (1)
  1. QUETIAPINE. [Suspect]
     Active Substance: QUETIAPINE
     Indication: MAJOR DEPRESSION
     Route: 065

REACTIONS (5)
  - Cranial nerve paralysis [Recovering/Resolving]
  - Retinal vascular occlusion [Unknown]
  - Weight increased [Recovering/Resolving]
  - Idiopathic intracranial hypertension [Recovering/Resolving]
  - Papilloedema [Not Recovered/Not Resolved]
